FAERS Safety Report 12809990 (Version 3)
Quarter: 2017Q4

REPORT INFORMATION
  Report Type: Report from Study
  Country: IT (occurrence: IT)
  Receive Date: 20161005
  Receipt Date: 20171214
  Transmission Date: 20180320
  Serious: Yes (Hospitalization)
  Sender: FDA-Public Use
  Company Number: IT-ROCHE-1837050

PATIENT
  Age: 62 Year
  Sex: Male
  Weight: 98 kg

DRUGS (18)
  1. PROPAFENONE. [Concomitant]
     Active Substance: PROPAFENONE
     Indication: SUPRAVENTRICULAR TACHYCARDIA
     Route: 065
     Dates: start: 2000
  2. TRIMETON [Concomitant]
     Active Substance: CHLORPHENIRAMINE MALEATE
     Indication: PREMEDICATION
     Route: 065
     Dates: start: 20160502, end: 20160927
  3. ZARZIO [Concomitant]
     Active Substance: FILGRASTIM
     Route: 065
     Dates: start: 20160927, end: 20160929
  4. ACYCLOVIR. [Concomitant]
     Active Substance: ACYCLOVIR
     Route: 065
     Dates: start: 20160502
  5. RITUXIMAB. [Suspect]
     Active Substance: RITUXIMAB
     Indication: B-CELL LYMPHOMA
     Dosage: INITIAL DOSE PER PROTOCOL?DAY 1 OF EVERY 21 DAY CYCLE?THE MOST RECENT DOSE OF RITUXIMAB 794.63 MG PR
     Route: 042
     Dates: start: 20160502
  6. DOXORUBICIN [Suspect]
     Active Substance: DOXORUBICIN
     Indication: B-CELL LYMPHOMA
     Dosage: INITIAL DOSE PER PROTOCOL?DAY 1 OF EVERY 21 DAY CYCLE?THE MOST RECENT DOSE OF DOXORUBICIN 105.95 MG
     Route: 042
     Dates: start: 20160502
  7. PARACETAMOL [Concomitant]
     Active Substance: ACETAMINOPHEN
     Indication: PREMEDICATION
     Route: 065
     Dates: start: 20160502, end: 20160927
  8. ZARZIO [Concomitant]
     Active Substance: FILGRASTIM
     Route: 065
     Dates: start: 20160912, end: 20160915
  9. TACHIPIRINA [Concomitant]
     Active Substance: ACETAMINOPHEN
     Route: 065
     Dates: start: 20160509, end: 20160929
  10. EPOETIN ALFA [Concomitant]
     Active Substance: ERYTHROPOIETIN
     Indication: ANAEMIA
     Route: 065
     Dates: start: 20160624, end: 20160906
  11. NIFEREX (ITALY) [Concomitant]
     Indication: ANAEMIA
     Route: 065
     Dates: start: 20160624, end: 20160906
  12. BACTRIM [Concomitant]
     Active Substance: SULFAMETHOXAZOLE\TRIMETHOPRIM
     Indication: INFECTION PROPHYLAXIS
     Route: 065
     Dates: start: 20160502
  13. CYCLOPHOSPHAMIDE. [Suspect]
     Active Substance: CYCLOPHOSPHAMIDE
     Indication: B-CELL LYMPHOMA
     Dosage: INITIAL DOSE PER PROTOCOL?DAY 1 OF EVERY 21 DAY CYCLE?THE MOST RECENT DOSE OF CYCLOPHOSPHAMIDE 1589.
     Route: 042
     Dates: start: 20160502
  14. PREDNISONE. [Suspect]
     Active Substance: PREDNISONE
     Indication: B-CELL LYMPHOMA
     Dosage: INITIAL DOSE PER PROTOCOL?THE MOST RECENT DOSE OF PREDNISONE 100 MG PRIOR TO THE EVENT ONSET WAS ON
     Route: 048
     Dates: start: 20160502
  15. OMEPRAZOLE. [Concomitant]
     Active Substance: OMEPRAZOLE
     Indication: PROPHYLAXIS AGAINST GASTROINTESTINAL ULCER
     Route: 065
     Dates: start: 20160421, end: 20161121
  16. VENETOCLAX. [Suspect]
     Active Substance: VENETOCLAX
     Indication: B-CELL LYMPHOMA
     Dosage: INITIAL DOSE PER PROTOCOL?THE MOST RECENT DOSE OF VENETOCLAX 800 MG PRIOR TO THE EVENT ONSET WAS ON
     Route: 048
     Dates: start: 20160505
  17. VINCRISTINE [Suspect]
     Active Substance: VINCRISTINE
     Indication: B-CELL LYMPHOMA
     Dosage: INITIAL DOSE PER PROTOCOL?DAY 1 OF EVERY 21 DAY CYCLE?THE MOST RECENT DOSE OF VINCRISTINE 2 MG PRIOR
     Route: 042
     Dates: start: 20160502
  18. ZARZIO [Concomitant]
     Active Substance: FILGRASTIM
     Indication: PROPHYLAXIS
     Route: 065
     Dates: start: 20160509

REACTIONS (1)
  - Spinal fracture [Recovered/Resolved]

NARRATIVE: CASE EVENT DATE: 20160928
